FAERS Safety Report 17054372 (Version 1)
Quarter: 2019Q4

REPORT INFORMATION
  Report Type: Spontaneous
  Country: US (occurrence: US)
  Receive Date: 20191120
  Receipt Date: 20191120
  Transmission Date: 20200122
  Serious: Yes (Other)
  Sender: FDA-Public Use
  Company Number: US-INTERCEPT-PM2019002018

PATIENT
  Age: 44 Year
  Sex: Female

DRUGS (4)
  1. OCALIVA [Suspect]
     Active Substance: OBETICHOLIC ACID
     Indication: PRIMARY BILIARY CHOLANGITIS
     Dosage: 5 MG, QD
     Route: 065
  2. CHOLESTYRAMINE. [Concomitant]
     Active Substance: CHOLESTYRAMINE
     Indication: PRURITUS
     Dosage: 4 G, TID
     Route: 065
  3. OCALIVA [Suspect]
     Active Substance: OBETICHOLIC ACID
     Dosage: 5 MG, BID
     Route: 065
  4. URSODIOL. [Concomitant]
     Active Substance: URSODIOL
     Indication: PRIMARY BILIARY CHOLANGITIS

REACTIONS (12)
  - Abdominal distension [Unknown]
  - Ocular icterus [Unknown]
  - Melaena [Unknown]
  - Diarrhoea [Unknown]
  - Hyperbilirubinaemia [Unknown]
  - Disease progression [Recovering/Resolving]
  - Jaundice [Unknown]
  - Pruritus [Recovered/Resolved]
  - Varices oesophageal [Recovered/Resolved]
  - Upper gastrointestinal haemorrhage [Unknown]
  - Fatigue [Unknown]
  - Ascites [Unknown]
